FAERS Safety Report 4360738-1 (Version None)
Quarter: 2004Q2

REPORT INFORMATION
  Report Type: 
  Country: None (occurrence: None)
  Receive Date: 20040514
  Receipt Date: 20040427
  Transmission Date: 20050107
  Serious: Yes (Hospitalization)
  Sender: FDA-Public Use
  Company Number: 196470

PATIENT
  Age: 51 Year
  Sex: Female
  Weight: 63.5036 kg

DRUGS (2)
  1. AVONEX ^BIOGEN^ [Suspect]
     Indication: MULTIPLE SCLEROSIS
     Dosage: 30 MCG QW IM
     Route: 030
     Dates: start: 19960101, end: 20031201
  2. AVONEX ^BIOGEN^ [Suspect]
     Indication: MULTIPLE SCLEROSIS
     Dosage: 30 MCG QW IM
     Route: 030
     Dates: start: 20040301

REACTIONS (8)
  - BACTERAEMIA [None]
  - CONVULSION [None]
  - CYSTITIS [None]
  - DECUBITUS ULCER [None]
  - DIABETES MELLITUS [None]
  - MEMORY IMPAIRMENT [None]
  - SPEECH DISORDER [None]
  - WEIGHT DECREASED [None]
